FAERS Safety Report 15326875 (Version 1)
Quarter: 2018Q3

REPORT INFORMATION
  Report Type: Spontaneous
  Country: US (occurrence: US)
  Receive Date: 20180828
  Receipt Date: 20180828
  Transmission Date: 20181010
  Serious: Yes (Life-Threatening, Hospitalization)
  Sender: FDA-Public Use
  Company Number: US-009507513-1808USA009218

PATIENT
  Age: 60 Year
  Sex: Male

DRUGS (2)
  1. MK?3475 [Suspect]
     Active Substance: PEMBROLIZUMAB
     Indication: RENAL CANCER METASTATIC
     Dosage: UNK
     Route: 065
  2. PROLEUKIN [Suspect]
     Active Substance: ALDESLEUKIN
     Indication: RENAL CANCER METASTATIC
     Dosage: UNK
     Route: 042
     Dates: start: 20171207, end: 20171207

REACTIONS (3)
  - Hypotension [Unknown]
  - Acute kidney injury [Unknown]
  - Dyspnoea [Unknown]

NARRATIVE: CASE EVENT DATE: 20171208
